FAERS Safety Report 4576079-3 (Version None)
Quarter: 2005Q1

REPORT INFORMATION
  Report Type: 
  Country: None (occurrence: None)
  Receive Date: 20050204
  Receipt Date: 20050121
  Transmission Date: 20050727
  Serious: Yes (Hospitalization)
  Sender: FDA-Public Use
  Company Number: 2004AP05667

PATIENT
  Age: 83 Year
  Sex: Male

DRUGS (4)
  1. ZOLADEX [Suspect]
     Indication: PROSTATE CANCER
     Dosage: 3.6 MG Q4WK SQ
     Route: 058
     Dates: start: 20040212
  2. GLYCYRON [Suspect]
     Indication: HEPATIC FUNCTION ABNORMAL
     Dosage: 6 DF DAILY PO
     Route: 048
     Dates: start: 20040903, end: 20040921
  3. NEOPHAGEN [Suspect]
     Indication: HEPATIC FUNCTION ABNORMAL
     Dosage: 20 ML DAILY
     Dates: start: 20040827, end: 20040903
  4. CHLORMADINONE ACETATE TAB [Suspect]
     Indication: PROSTATE CANCER
     Dosage: 100 MG DAILY PO
     Route: 048
     Dates: start: 20040701, end: 20040825

REACTIONS (5)
  - ANOREXIA [None]
  - HEPATIC FUNCTION ABNORMAL [None]
  - HYPOKALAEMIA [None]
  - PLEURAL EFFUSION [None]
  - WEIGHT DECREASED [None]
